FAERS Safety Report 5857837-1 (Version None)
Quarter: 2008Q3

REPORT INFORMATION
  Report Type: 
  Country: None (occurrence: None)
  Receive Date: 20080825
  Receipt Date: 20080825
  Transmission Date: 20090109
  Serious: No
  Sender: FDA-Public Use
  Company Number: None

PATIENT
  Age: 19 Year
  Sex: Female
  Weight: 86.1834 kg

DRUGS (1)
  1. PLAN B [Suspect]
     Indication: CONTRACEPTIVE DEVICE COMPLICATION
     Dosage: 0.75 MG TWICE PO
     Route: 048
     Dates: start: 20080820, end: 20080820

REACTIONS (3)
  - MOOD ALTERED [None]
  - MOOD SWINGS [None]
  - VISION BLURRED [None]
